FAERS Safety Report 4399292-7 (Version None)
Quarter: 2004Q3

REPORT INFORMATION
  Report Type: 
  Country: None (occurrence: None)
  Receive Date: 20040712
  Receipt Date: 20040625
  Transmission Date: 20050211
  Serious: Yes (Hospitalization)
  Sender: FDA-Public Use
  Company Number: 2004-FF-00399FF

PATIENT
  Age: 82 Year
  Sex: Male

DRUGS (12)
  1. ATROVENT [Suspect]
     Dosage: 60 MCG (20 MCG) IH
     Route: 055
     Dates: end: 20040603
  2. ACETAMINOPHEN [Concomitant]
  3. CALCIPARINE [Concomitant]
  4. LASIX [Concomitant]
  5. OFLOXACIN [Concomitant]
  6. DILTIAZEM HYDROCHLORIDE [Concomitant]
  7. CORDARONE [Concomitant]
  8. ANAFRANIL [Concomitant]
  9. OMEPRAZOLE [Concomitant]
  10. IMOVANE (ZOPICLONE) [Concomitant]
  11. ZAMUDOL (TRAMADOL HYDROCHLORIDE) [Concomitant]
  12. BRICANYL [Concomitant]

REACTIONS (1)
  - THROMBOCYTOPENIA [None]
